FAERS Safety Report 24075408 (Version 1)
Quarter: 2024Q3

REPORT INFORMATION
  Report Type: Other
  Country: CN (occurrence: CN)
  Receive Date: 20240710
  Receipt Date: 20240710
  Transmission Date: 20241017
  Serious: Yes (Other)
  Sender: PAREXEL
  Company Number: CN-TETRAPHASE PHARMACEUTICALS, INC-2024-INNO-CN000045

PATIENT

DRUGS (2)
  1. XERAVA [Suspect]
     Active Substance: ERAVACYCLINE DIHYDROCHLORIDE
     Indication: Pneumonia acinetobacter
     Dosage: 50 MG, Q12H
     Route: 041
     Dates: start: 20240609, end: 20240617
  2. SODIUM CHLORIDE [Concomitant]
     Active Substance: SODIUM CHLORIDE
     Indication: Product used for unknown indication
     Dosage: UNK
     Dates: start: 20240609, end: 20240617

REACTIONS (2)
  - Blood fibrinogen decreased [Recovering/Resolving]
  - Off label use [Unknown]

NARRATIVE: CASE EVENT DATE: 20240609
